FAERS Safety Report 6571188-1 (Version None)
Quarter: 2010Q1

REPORT INFORMATION
  Report Type: 
  Country: None (occurrence: None)
  Receive Date: 20100204
  Receipt Date: 20100129
  Transmission Date: 20100710
  Serious: No
  Sender: FDA-Public Use
  Company Number: AU-MERCK-0907USA00985

PATIENT
  Age: 99 Year

DRUGS (1)
  1. FOSAMAX PLUS D [Suspect]
     Route: 048

REACTIONS (2)
  - INFECTION [None]
  - JAW FRACTURE [None]
